FAERS Safety Report 17366500 (Version 4)
Quarter: 2020Q1

REPORT INFORMATION
  Report Type: Spontaneous
  Country: US (occurrence: US)
  Receive Date: 20200204
  Receipt Date: 20200304
  Transmission Date: 20200409
  Serious: No
  Sender: FDA-Public Use
  Company Number: US-PFIZER INC-2020039768

PATIENT
  Age: 90 Year
  Sex: Female

DRUGS (16)
  1. VALIUM [Suspect]
     Active Substance: DIAZEPAM
     Indication: ANXIETY
  2. ELIQUIS [Suspect]
     Active Substance: APIXABAN
     Indication: CEREBROVASCULAR ACCIDENT PROPHYLAXIS
     Dosage: 5 MILLIGRAM, QD
     Route: 065
     Dates: start: 20180201
  3. AMLODIPINE BESILATE [Suspect]
     Active Substance: AMLODIPINE BESYLATE
     Indication: BLOOD PRESSURE DECREASED
     Dosage: 2.5 MILLIGRAM, QD
     Route: 065
     Dates: start: 20190124
  4. LORADINE [Concomitant]
     Active Substance: LORATADINE
     Dosage: 1/MONTH TAKE NIGHT BEFORE  TAKING IBIANDRONATE FOR OSTEO
     Route: 065
  5. GELUSIL ANTACID [Concomitant]
     Indication: FLATULENCE
     Dosage: 2-4 TABS
     Route: 065
  6. OCUVITE LUTEIN + ZEAXANTHIN [Concomitant]
     Indication: EYE DISORDER
     Dosage: 1 PER DAY
     Route: 065
  7. LYSINE ACETATE [Concomitant]
     Active Substance: LYSINE ACETATE
     Indication: DENTAL CARE
     Dosage: 1000 MILLIGRAM
     Route: 065
  8. IBANDRONATE [Suspect]
     Active Substance: IBANDRONATE SODIUM
     Dosage: 150 MG 1 TAB ONCE/MONTH ON EMPTY STOMACH
     Route: 065
  9. LOSARTAN POTASSIUM. [Suspect]
     Active Substance: LOSARTAN POTASSIUM
     Indication: BLOOD PRESSURE DECREASED
     Dosage: 100 MILLIGRAM, QD
     Route: 065
     Dates: start: 20150430
  10. PREMARIN [Suspect]
     Active Substance: ESTROGENS, CONJUGATED
     Indication: POLLAKIURIA
     Dosage: 0.625 MILLIGRAM
     Route: 065
  11. FLECAINIDE ACETATE. [Suspect]
     Active Substance: FLECAINIDE ACETATE
     Indication: HEART RATE INCREASED
     Dosage: 100 MILLIGRAM, BID
     Route: 065
     Dates: start: 20040419
  12. VALIUM [Suspect]
     Active Substance: DIAZEPAM
     Indication: PROPHYLAXIS
     Dosage: 5 MG, AS NEEDED
     Route: 065
  13. VALIUM [Suspect]
     Active Substance: DIAZEPAM
     Indication: TENSION
  14. ELIQUIS [Suspect]
     Active Substance: APIXABAN
     Dosage: 2.5 MILLIGRAM, BID
     Route: 065
     Dates: start: 201909
  15. VITAMIN D 2000 [Concomitant]
     Active Substance: VITAMIN D NOS
     Indication: BLOOD CALCIUM DECREASED
     Dosage: 2000 MG 1 CAPSULE DAILY
     Route: 065
  16. COSAMIN DS [CHONDROITIN SULFATE SODIUM;GLUCOSAMINE HYDROCHLORIDE;MANGA [Concomitant]
     Indication: ARTHRALGIA
     Dosage: 500 MG 3 CAPSULES DAILY
     Route: 065
     Dates: start: 1998

REACTIONS (2)
  - Off label use [Unknown]
  - Seasonal allergy [Not Recovered/Not Resolved]
